FAERS Safety Report 7347948-6 (Version None)
Quarter: 2011Q1

REPORT INFORMATION
  Report Type: 
  Country: None (occurrence: None)
  Receive Date: 20110311
  Receipt Date: 20110222
  Transmission Date: 20110831
  Serious: Yes (Hospitalization, Other)
  Sender: FDA-Public Use
  Company Number: US-BAYER-201028843NA

PATIENT
  Sex: Female
  Weight: 86.168 kg

DRUGS (6)
  1. NUVARING [Concomitant]
     Dosage: UNK
     Dates: start: 20081017
  2. YAZ [Suspect]
     Indication: ACNE
     Dosage: 1 TAB / DAY
  3. OCELLA [Suspect]
  4. PROPRANOLOL [Concomitant]
     Dosage: UNK
     Dates: start: 20080101, end: 20090101
  5. YASMIN [Suspect]
     Indication: ACNE
     Dosage: UNK
     Dates: start: 20070501, end: 20080801
  6. YASMIN [Suspect]
     Indication: CONTRACEPTION

REACTIONS (8)
  - CHOLELITHIASIS [None]
  - VOMITING [None]
  - ABDOMINAL PAIN UPPER [None]
  - NAUSEA [None]
  - CHOLESTEROSIS [None]
  - DIARRHOEA [None]
  - BILIARY COLIC [None]
  - DEHYDRATION [None]
